FAERS Safety Report 5256024-8 (Version None)
Quarter: 2007Q1

REPORT INFORMATION
  Report Type: 
  Country: None (occurrence: None)
  Receive Date: 20070306
  Receipt Date: 20070223
  Transmission Date: 20070707
  Serious: Yes (Hospitalization, Other)
  Sender: FDA-Public Use
  Company Number: PHHO2007AT02332

PATIENT
  Age: 71 Year
  Sex: Male

DRUGS (11)
  1. THALIDOMIDE [Suspect]
     Indication: MULTIPLE MYELOMA
     Dosage: 100 MG, QD
     Route: 048
     Dates: start: 20040510, end: 20070123
  2. INTRON A [Suspect]
     Indication: MULTIPLE MYELOMA
     Dosage: 3X3HIO IU WEEKLY
     Route: 058
     Dates: start: 20050208, end: 20070201
  3. ZOLEDRONATE [Suspect]
     Indication: MULTIPLE MYELOMA
     Dosage: 4MG PER MONTH
     Route: 042
     Dates: start: 20040510, end: 20070201
  4. PLAVIX [Concomitant]
  5. DIABETEX [Concomitant]
  6. PANTOPRAZOLE SODIUM [Concomitant]
  7. AMARYL [Concomitant]
  8. ISOPTIN [Concomitant]
  9. ATACAND [Concomitant]
  10. OMEPRAZOLE [Concomitant]
  11. NEURONTIN [Concomitant]

REACTIONS (7)
  - ANAEMIA [None]
  - BALANCE DISORDER [None]
  - CONCOMITANT DISEASE PROGRESSION [None]
  - OSTEOLYSIS [None]
  - OSTEONECROSIS [None]
  - POLYNEUROPATHY [None]
  - THERAPEUTIC PROCEDURE [None]
